FAERS Safety Report 7526816-0 (Version None)
Quarter: 2011Q2

REPORT INFORMATION
  Report Type: 
  Country: None (occurrence: None)
  Receive Date: 20110606
  Receipt Date: 20110503
  Transmission Date: 20111010
  Serious: No
  Sender: FDA-Public Use
  Company Number: US-BAYER-2011-039784

PATIENT
  Sex: Female

DRUGS (2)
  1. ALEVE (CAPLET) [Suspect]
     Indication: HEADACHE
     Dosage: 440 MG, UNK
     Route: 048
  2. UNISOM [DIPHENHYDRAMINE HYDROCHLORIDE] [Concomitant]
     Dosage: 4 DF, UNK

REACTIONS (1)
  - HEADACHE [None]
